FAERS Safety Report 13176196 (Version 2)
Quarter: 2017Q2

REPORT INFORMATION
  Report Type: Spontaneous
  Country: US (occurrence: US)
  Receive Date: 20170201
  Receipt Date: 20170417
  Transmission Date: 20170830
  Serious: Yes (Other)
  Sender: FDA-Public Use
  Company Number: US-BAYER-2017-014452

PATIENT
  Sex: Female

DRUGS (4)
  1. KOGENATE FS [Suspect]
     Active Substance: ANTIHEMOPHILIC FACTOR, HUMAN RECOMBINANT
     Indication: HAEMOPHILIA
     Dosage: UNK
  2. KOVALTRY [Suspect]
     Active Substance: ANTIHEMOPHILIC FACTOR, HUMAN RECOMBINANT
     Indication: HAEMOPHILIA
     Dosage: UNK
     Dates: start: 20170109, end: 20170109
  3. KOGENATE FS [Suspect]
     Active Substance: ANTIHEMOPHILIC FACTOR, HUMAN RECOMBINANT
     Indication: HAEMOPHILIA
     Dosage: UNK
     Dates: start: 20170109, end: 20170109
  4. KOVALTRY [Suspect]
     Active Substance: ANTIHEMOPHILIC FACTOR, HUMAN RECOMBINANT
     Indication: HAEMOPHILIA
     Dosage: UNK

REACTIONS (15)
  - Lymph node palpable [None]
  - Red blood cell elliptocytes present [None]
  - Abdominal distension [None]
  - Platelet morphology abnormal [None]
  - Weight decreased [None]
  - Bone neoplasm [Not Recovered/Not Resolved]
  - Influenza like illness [None]
  - Neutrophil toxic granulation present [None]
  - Pyrexia [None]
  - Poikilocytosis [None]
  - Sepsis [None]
  - Leukocyte vacuolisation [None]
  - Malaise [None]
  - Chills [None]
  - Abdominal discomfort [None]

NARRATIVE: CASE EVENT DATE: 2016
